FAERS Safety Report 10177114 (Version 1)
Quarter: 2014Q2

REPORT INFORMATION
  Report Type: Spontaneous
  Country: KR (occurrence: None)
  Receive Date: 20140514
  Receipt Date: 20140514
  Transmission Date: 20141212
  Serious: Yes (Death, Hospitalization)
  Sender: FDA-Public Use
  Company Number: COR_00047_2014

PATIENT
  Age: 69 Year
  Sex: Male

DRUGS (6)
  1. ETOPOSIDE [Suspect]
     Indication: PERIPHERAL T-CELL LYMPHOMA UNSPECIFIED STAGE IV
     Dosage: (100 MG/M2, [DAY 1] INTRAVENOUS (NOT OTHERWISE SPECIFIED))?
     Route: 042
  2. CYCLOPHOSPHAMIDE [Suspect]
     Indication: PERIPHERAL T-CELL LYMPHOMA UNSPECIFIED STAGE IV
     Dosage: (750 MG/M2, [DAY 1] INTRAVENOUS (NOT OTHERWISE SPECIFIED)?
     Route: 042
  3. LENOGRASTIM [Suspect]
     Indication: NEUTROPENIA
     Dosage: 5 UG/KG, DF INTRAVENOUS (NOT OTHERWISE SPECIFIED)??
     Route: 042
  4. VINCRISTINE [Suspect]
     Indication: PERIPHERAL T-CELL LYMPHOMA UNSPECIFIED STAGE IV
     Dosage: (1.4 MG/M2, [DAY 1] INTRAVENOUS (NOT OTHERWISE SPECIFIED)??
     Route: 042
  5. DOXORUBICIN [Suspect]
     Indication: PERIPHERAL T-CELL LYMPHOMA UNSPECIFIED STAGE IV
     Dosage: (50 MG/M2, [DAY 1} INTRAVENOUS (NOT OTHERWISE SPECIFIED)??
     Route: 042
  6. PREDNISOLONE [Suspect]
     Indication: PERIPHERAL T-CELL LYMPHOMA UNSPECIFIED STAGE IV
     Dosage: (60 MG/M2,  [DAY 1-5] ORAL)?
     Route: 048

REACTIONS (8)
  - Neutropenia [None]
  - Dyspnoea exertional [None]
  - Respiratory alkalosis [None]
  - Small intestinal haemorrhage [None]
  - Pneumonitis [None]
  - Pneumomediastinum [None]
  - Respiratory distress [None]
  - Respiratory failure [None]
